FAERS Safety Report 6211997-1 (Version None)
Quarter: 2009Q2

REPORT INFORMATION
  Report Type: 
  Country: None (occurrence: None)
  Receive Date: 20090529
  Receipt Date: 20090518
  Transmission Date: 20091009
  Serious: Yes (Other)
  Sender: FDA-Public Use
  Company Number: 2009AP001995

PATIENT

DRUGS (2)
  1. CYCLOSPORINE [Suspect]
  2. DEXAMETHASONE [Suspect]

REACTIONS (12)
  - CEREBRAL HAEMORRHAGE [None]
  - CONVULSION [None]
  - DEAFNESS NEUROSENSORY [None]
  - DELIRIUM [None]
  - DISEASE COMPLICATION [None]
  - DRUG LEVEL ABOVE THERAPEUTIC [None]
  - HYPERTENSION [None]
  - NEUROTOXICITY [None]
  - RENAL FAILURE ACUTE [None]
  - REVERSIBLE POSTERIOR LEUKOENCEPHALOPATHY SYNDROME [None]
  - SOMNOLENCE [None]
  - SPEECH DISORDER [None]
